FAERS Safety Report 13138598 (Version 1)
Quarter: 2017Q1

REPORT INFORMATION
  Report Type: Spontaneous
  Country: US (occurrence: US)
  Receive Date: 20170123
  Receipt Date: 20170123
  Transmission Date: 20170428
  Serious: No
  Sender: FDA-Public Use
  Company Number: None

PATIENT
  Age: 37 Year
  Sex: Male
  Weight: 74.91 kg

DRUGS (6)
  1. MULTIVITAMIN [Concomitant]
     Active Substance: VITAMINS
  2. REMICADE [Suspect]
     Active Substance: INFLIXIMAB
     Indication: PROCTITIS
     Dosage: 750MG PER KILOGRAM EVERY 8 WEEKS INJECTED
     Dates: start: 20161128, end: 20161128
  3. CANASA [Concomitant]
     Active Substance: MESALAMINE
  4. REMICADE [Suspect]
     Active Substance: INFLIXIMAB
     Indication: ARTHRITIS
     Dosage: 750MG PER KILOGRAM EVERY 8 WEEKS INJECTED
     Dates: start: 20161128, end: 20161128
  5. LIALDA [Concomitant]
     Active Substance: MESALAMINE
  6. IMURAN [Concomitant]
     Active Substance: AZATHIOPRINE

REACTIONS (3)
  - Panic attack [None]
  - Anxiety [None]
  - Insomnia [None]

NARRATIVE: CASE EVENT DATE: 20161128
